FAERS Safety Report 22063869 (Version 1)
Quarter: 2023Q1

REPORT INFORMATION
  Report Type: Report from Study
  Country: PH (occurrence: PH)
  Receive Date: 20230306
  Receipt Date: 20230306
  Transmission Date: 20230418
  Serious: Yes (Death)
  Sender: FDA-Public Use
  Company Number: PH-002147023-NVSC2023PH049490

PATIENT
  Age: 69 Year
  Sex: Female

DRUGS (4)
  1. RIBOCICLIB [Suspect]
     Active Substance: RIBOCICLIB
     Indication: Product used for unknown indication
     Dosage: 200 MG, OTHER (AS PER RX DATED 05 AUG 2022: KRYXANA 200 MG/TAB 63, 2 TABLETS WITH FOOD FOR 21 DAYS,
     Route: 048
  2. RIBOCICLIB [Suspect]
     Active Substance: RIBOCICLIB
     Dosage: 3 DOSAGE FORM, QD (AS PER RX DATED NOV 2022: RIBOCICLIB 200 MG/TAB 3 BOXES, 3 TABS ONCE A DAY)
     Route: 048
  3. LETROZOLE [Suspect]
     Active Substance: LETROZOLE
     Indication: Product used for unknown indication
     Dosage: 2.5 MG, OTHER (AS PER RX DATED AUG 5, 2022: 21, AD)
     Route: 048
  4. LETROZOLE [Suspect]
     Active Substance: LETROZOLE
     Dosage: 1 DOSAGE FORM, QD (AS PER RX DATED NOV 2022: 60, TAKE 1 TAB ONCE A DAY)
     Route: 048

REACTIONS (1)
  - Death [Fatal]

NARRATIVE: CASE EVENT DATE: 20230218
